FAERS Safety Report 4661274-5 (Version None)
Quarter: 2005Q2

REPORT INFORMATION
  Report Type: 
  Country: None (occurrence: None)
  Receive Date: 20050513
  Receipt Date: 20050509
  Transmission Date: 20051028
  Serious: Yes (Death, Hospitalization)
  Sender: FDA-Public Use
  Company Number: PHRM2005FR01469

PATIENT
  Age: 71 Year
  Sex: Male
  Weight: 100 kg

DRUGS (4)
  1. FORADIL [Suspect]
     Dosage: 3 DF, QD
     Dates: end: 20050403
  2. CORDARONE [Suspect]
     Indication: VENTRICULAR EXTRASYSTOLES
     Dosage: 1 DF, QD
     Route: 048
     Dates: end: 20050330
  3. KENZEN [Suspect]
     Dosage: 8 MG, QD
     Route: 048
     Dates: end: 20050403
  4. OXEOL [Suspect]
     Dosage: 20 MG, QD
     Route: 048
     Dates: end: 20050403

REACTIONS (4)
  - DYSPNOEA [None]
  - INTERSTITIAL LUNG DISEASE [None]
  - RESPIRATORY FAILURE [None]
  - SENSE OF OPPRESSION [None]
